FAERS Safety Report 5662882-5 (Version None)
Quarter: 2008Q1

REPORT INFORMATION
  Report Type: 
  Country: None (occurrence: None)
  Receive Date: 20080313
  Receipt Date: 20080311
  Transmission Date: 20080703
  Serious: Yes (Other)
  Sender: FDA-Public Use
  Company Number: CA-ASTRAZENECA-2008AC00648

PATIENT
  Age: 44 Year
  Sex: Male

DRUGS (8)
  1. LIDOCAINE [Suspect]
     Indication: LOCAL ANAESTHESIA
  2. BUPIVACAINE [Suspect]
     Indication: LOCAL ANAESTHESIA
  3. PROPOFOL [Suspect]
     Indication: AGITATION
     Route: 042
  4. PROPOFOL [Suspect]
     Indication: SEDATION
     Route: 042
  5. FENTANYL [Suspect]
     Indication: AGITATION
     Route: 042
  6. FENTANYL [Suspect]
     Indication: SEDATION
     Route: 042
  7. MIDAZOLAM HCL [Suspect]
     Indication: AGITATION
     Route: 042
  8. MIDAZOLAM HCL [Suspect]
     Indication: SEDATION
     Route: 042

REACTIONS (1)
  - ROAD TRAFFIC ACCIDENT [None]
